FAERS Safety Report 6023562-X (Version None)
Quarter: 2008Q4

REPORT INFORMATION
  Report Type: 
  Country: None (occurrence: None)
  Receive Date: 20081230
  Receipt Date: 20081222
  Transmission Date: 20090506
  Serious: Yes (Hospitalization)
  Sender: FDA-Public Use
  Company Number: US-GILEAD-2008-0019509

PATIENT
  Sex: Female
  Weight: 59.928 kg

DRUGS (9)
  1. LETAIRIS [Suspect]
     Indication: PULMONARY HYPERTENSION
     Route: 048
     Dates: start: 20081125
  2. COUMADIN [Concomitant]
     Indication: PULMONARY EMBOLISM
     Dates: end: 20081201
  3. COUMADIN [Concomitant]
     Dates: start: 20081202
  4. REVATIO [Concomitant]
     Route: 048
  5. TORSEMIDE [Concomitant]
  6. GLIPIZIDE [Concomitant]
     Indication: TYPE 2 DIABETES MELLITUS
  7. ASCORBIC ACID [Concomitant]
  8. VITAMIN E [Concomitant]
  9. CALCIUM AND VITAMIN D [Concomitant]

REACTIONS (3)
  - CARDIAC FAILURE [None]
  - SWELLING [None]
  - WEIGHT INCREASED [None]
